FAERS Safety Report 6025682-2 (Version None)
Quarter: 2008Q4

REPORT INFORMATION
  Report Type: 
  Country: None (occurrence: None)
  Receive Date: 20081231
  Receipt Date: 20081219
  Transmission Date: 20090506
  Serious: Yes (Hospitalization, Other)
  Sender: FDA-Public Use
  Company Number: IT-GENENTECH-272468

PATIENT
  Sex: Male

DRUGS (1)
  1. RITUXIMAB [Suspect]
     Indication: B-CELL LYMPHOMA
     Dosage: 630 MG, 1/WEEK
     Route: 042
     Dates: start: 20060427, end: 20061009

REACTIONS (2)
  - ANGINA PECTORIS [None]
  - THROMBOSIS [None]
